FAERS Safety Report 22311085 (Version 1)
Quarter: 2023Q2

REPORT INFORMATION
  Report Type: Spontaneous
  Country: US (occurrence: US)
  Receive Date: 20230511
  Receipt Date: 20230511
  Transmission Date: 20230721
  Serious: No
  Sender: FDA-Public Use
  Company Number: US-MYLANLABS-2023M1046433

PATIENT
  Sex: Male

DRUGS (1)
  1. SEMGLEE (INSULIN GLARGINE-YFGN) [Suspect]
     Active Substance: INSULIN GLARGINE-YFGN
     Indication: Type 2 diabetes mellitus
     Dosage: 34 INTERNATIONAL UNIT, QD (DAILY)
     Route: 058

REACTIONS (5)
  - Lipohypertrophy [Unknown]
  - Injection site mass [Unknown]
  - Weight decreased [Unknown]
  - Device mechanical issue [Unknown]
  - Wrong technique in product usage process [Unknown]
